FAERS Safety Report 7269994-3 (Version None)
Quarter: 2011Q1

REPORT INFORMATION
  Report Type: 
  Country: None (occurrence: None)
  Receive Date: 20110202
  Receipt Date: 20110127
  Transmission Date: 20110831
  Serious: Yes (Other)
  Sender: FDA-Public Use
  Company Number: ZA-ROCHE-754120

PATIENT
  Sex: Female
  Weight: 62 kg

DRUGS (2)
  1. ISOTRETINOIN [Suspect]
     Route: 048
     Dates: end: 20100401
  2. ISOTRETINOIN [Suspect]
     Route: 048
     Dates: start: 20091101

REACTIONS (2)
  - RHEUMATOID ARTHRITIS [None]
  - ARTHRALGIA [None]
